FAERS Safety Report 9469346 (Version 3)
Quarter: 2013Q3

REPORT INFORMATION
  Report Type: Spontaneous
  Country: US (occurrence: US)
  Receive Date: 20130821
  Receipt Date: 20130905
  Transmission Date: 20140515
  Serious: Yes (Hospitalization)
  Sender: FDA-Public Use
  Company Number: US-UCBSA-062921

PATIENT
  Age: 71 Year
  Sex: Male
  Weight: 68.03 kg

DRUGS (3)
  1. CIMZIA [Suspect]
     Indication: CROHN^S DISEASE
     Dosage: UNKNOWN DOSE, NO. OF DOSES: 2
     Dates: start: 2010
  2. CIPRO [Concomitant]
     Dates: start: 20120711
  3. FLAGYL [Concomitant]
     Dates: start: 20120711

REACTIONS (1)
  - Abdominal abscess [Recovering/Resolving]
